FAERS Safety Report 14954587 (Version 2)
Quarter: 2018Q2

REPORT INFORMATION
  Report Type: Spontaneous
  Country: US (occurrence: US)
  Receive Date: 20180530
  Receipt Date: 20180617
  Transmission Date: 20180711
  Serious: Yes (Hospitalization)
  Sender: FDA-Public Use
  Company Number: US-ELI_LILLY_AND_COMPANY-US201805009163

PATIENT
  Age: 62 Year
  Sex: Female
  Weight: 133 kg

DRUGS (10)
  1. METHOTREXATE. [Concomitant]
     Active Substance: METHOTREXATE
     Indication: PRODUCT USED FOR UNKNOWN INDICATION
  2. LIPITOR [Concomitant]
     Active Substance: ATORVASTATIN CALCIUM
     Indication: BLOOD CHOLESTEROL
  3. ADVAIR HFA [Concomitant]
     Active Substance: FLUTICASONE PROPIONATE\SALMETEROL XINAFOATE
     Indication: ASTHMA
  4. HUMIRA [Suspect]
     Active Substance: ADALIMUMAB
     Indication: RHEUMATOID ARTHRITIS
     Dosage: 40 MG, 1 IN 10, DAILY
     Route: 058
     Dates: start: 201706
  5. CYMBALTA [Suspect]
     Active Substance: DULOXETINE HYDROCHLORIDE
     Indication: PAIN
  6. CYMBALTA [Suspect]
     Active Substance: DULOXETINE HYDROCHLORIDE
     Indication: DEPRESSION
     Dosage: UNK, UNKNOWN
     Route: 065
  7. FOLIC ACID. [Concomitant]
     Active Substance: FOLIC ACID
     Indication: PRODUCT USED FOR UNKNOWN INDICATION
  8. VITAMIN D                          /00107901/ [Concomitant]
     Active Substance: ERGOCALCIFEROL
     Indication: PRODUCT USED FOR UNKNOWN INDICATION
  9. ASPIRIN                            /00002701/ [Concomitant]
     Active Substance: ASPIRIN
     Indication: PRODUCT USED FOR UNKNOWN INDICATION
  10. VENTOLIN [Concomitant]
     Active Substance: ALBUTEROL SULFATE
     Indication: ASTHMA

REACTIONS (15)
  - Gait inability [Recovered/Resolved]
  - Pain [Unknown]
  - Dysuria [Unknown]
  - Fluid intake reduced [Recovered/Resolved]
  - Sensitivity to weather change [Unknown]
  - Vertigo positional [Recovered/Resolved]
  - Malaise [Unknown]
  - Fall [Recovered/Resolved]
  - Vulvovaginal pain [Unknown]
  - Stress [Unknown]
  - Back pain [Recovered/Resolved]
  - Feeding disorder [Recovered/Resolved]
  - Vertigo positional [Recovered/Resolved]
  - Pelvic pain [Recovered/Resolved]
  - Vertigo positional [Recovered/Resolved]

NARRATIVE: CASE EVENT DATE: 201803
